FAERS Safety Report 10263848 (Version 3)
Quarter: 2014Q4

REPORT INFORMATION
  Report Type: Spontaneous
  Country: FR (occurrence: FR)
  Receive Date: 20140627
  Receipt Date: 20141016
  Transmission Date: 20150528
  Serious: Yes (Other)
  Sender: FDA-Public Use
  Company Number: FR-BEH-2014043408

PATIENT
  Age: 30 Year
  Sex: Female

DRUGS (2)
  1. INTRAVENOUS POLYVALENT IMMUNOGLOBULIN [Suspect]
     Active Substance: HUMAN IMMUNOGLOBULIN G
     Indication: STILL^S DISEASE ADULT ONSET
  2. PREDNISOLONE. [Concomitant]
     Active Substance: PREDNISOLONE

REACTIONS (5)
  - Maternal exposure before pregnancy [Unknown]
  - Foetal heart rate abnormal [Unknown]
  - Drug ineffective for unapproved indication [Unknown]
  - Caesarean section [Unknown]
  - Exposure during pregnancy [Unknown]
